FAERS Safety Report 4984249-5 (Version None)
Quarter: 2006Q2

REPORT INFORMATION
  Report Type: 
  Country: None (occurrence: None)
  Receive Date: 20060420
  Receipt Date: 20060403
  Transmission Date: 20061013
  Serious: Yes (Hospitalization)
  Sender: FDA-Public Use
  Company Number: DSA_27974_2006

PATIENT
  Age: 51 Year
  Sex: Female

DRUGS (5)
  1. TAVOR    /00273201/ [Suspect]
     Dosage: 100 MG ONCE PO
     Route: 048
     Dates: start: 20060402, end: 20060402
  2. APONAL [Suspect]
     Dosage: 500 MG ONCE PO
     Route: 048
     Dates: start: 20060402, end: 20060402
  3. HOGGAR N [Suspect]
     Dosage: 50 TAB ONCE PO
     Route: 048
     Dates: start: 20060402, end: 20060402
  4. SINEQUAN [Suspect]
     Dosage: 2500 MG ONCE PO
     Route: 048
     Dates: start: 20060402, end: 20060402
  5. ALCOHOL [Suspect]
     Dosage: DF ONCE PO
     Route: 048
     Dates: start: 20060402, end: 20060402

REACTIONS (5)
  - ALCOHOL USE [None]
  - MIOSIS [None]
  - MULTIPLE DRUG OVERDOSE INTENTIONAL [None]
  - SOMNOLENCE [None]
  - SUICIDE ATTEMPT [None]
